FAERS Safety Report 10627642 (Version 4)
Quarter: 2016Q3

REPORT INFORMATION
  Report Type: Report from Study
  Country: JP (occurrence: JP)
  Receive Date: 20141205
  Receipt Date: 20160803
  Transmission Date: 20161109
  Serious: Yes (Death, Hospitalization, Other)
  Sender: FDA-Public Use
  Company Number: JP-BRISTOL-MYERS SQUIBB COMPANY-21670740

PATIENT
  Age: 67 Year
  Sex: Female
  Weight: 56 kg

DRUGS (1)
  1. APIXABAN [Suspect]
     Active Substance: APIXABAN
     Indication: THROMBOSIS PROPHYLAXIS
     Dosage: 5 MG, BID
     Route: 048
     Dates: start: 20140617, end: 20140702

REACTIONS (6)
  - Urinary tract infection [Recovering/Resolving]
  - Gastrointestinal haemorrhage [Not Recovered/Not Resolved]
  - Anaemia [Unknown]
  - Acute respiratory distress syndrome [Fatal]
  - Thrombotic cerebral infarction [Not Recovered/Not Resolved]
  - Septic shock [Unknown]

NARRATIVE: CASE EVENT DATE: 201407
